FAERS Safety Report 5519932-6 (Version None)
Quarter: 2007Q4

REPORT INFORMATION
  Report Type: 
  Country: None (occurrence: None)
  Receive Date: 20071116
  Receipt Date: 20071107
  Transmission Date: 20080405
  Serious: Yes (Other)
  Sender: FDA-Public Use
  Company Number: JP-ASTRAZENECA-2007AP06265

PATIENT
  Age: 28283 Day
  Sex: Male
  Weight: 70 kg

DRUGS (8)
  1. CASODEX [Suspect]
     Indication: PROSTATE CANCER
     Route: 048
     Dates: start: 20051208
  2. NORVASC [Concomitant]
     Route: 048
  3. DIOVAN [Concomitant]
     Route: 048
  4. SOLANAX [Concomitant]
     Route: 048
  5. MYSLEE [Concomitant]
     Route: 048
  6. BUP-4 [Concomitant]
     Route: 048
  7. SPIROPENT [Concomitant]
     Route: 048
  8. APLACE [Concomitant]
     Route: 048

REACTIONS (7)
  - DEPRESSION [None]
  - DIZZINESS [None]
  - FEELING ABNORMAL [None]
  - HEADACHE [None]
  - HYPERHIDROSIS [None]
  - HYPOAESTHESIA [None]
  - NAUSEA [None]
